FAERS Safety Report 8021356-7 (Version None)
Quarter: 2012Q1

REPORT INFORMATION
  Report Type: 
  Country: None (occurrence: None)
  Receive Date: 20120104
  Receipt Date: 20111230
  Transmission Date: 20120608
  Serious: Yes (Death)
  Sender: FDA-Public Use
  Company Number: BR-PFIZER INC-2012000188

PATIENT
  Age: 95 Year
  Sex: Female

DRUGS (2)
  1. AROMASIN [Suspect]
     Indication: NEOPLASM MALIGNANT
  2. AROMASIN [Suspect]
     Indication: OFF LABEL USE
     Dosage: UNK
     Route: 048

REACTIONS (1)
  - DEATH [None]
